FAERS Safety Report 6569416-1 (Version None)
Quarter: 2010Q1

REPORT INFORMATION
  Report Type: 
  Country: None (occurrence: None)
  Receive Date: 20100202
  Receipt Date: 20100202
  Transmission Date: 20100710
  Serious: Yes (Other)
  Sender: FDA-Public Use
  Company Number: None

PATIENT
  Sex: Male
  Weight: 29.4838 kg

DRUGS (1)
  1. SINGULAIR [Suspect]
     Indication: SEASONAL ALLERGY
     Dosage: 5 MG CHEWABLE 1 X DAILY PO
     Route: 048
     Dates: start: 20091015, end: 20091120

REACTIONS (5)
  - FEAR [None]
  - INSOMNIA [None]
  - NIGHTMARE [None]
  - ONYCHOPHAGIA [None]
  - PRODUCT QUALITY ISSUE [None]
